FAERS Safety Report 7368393-3 (Version None)
Quarter: 2011Q1

REPORT INFORMATION
  Report Type: 
  Country: None (occurrence: None)
  Receive Date: 20110311
  Receipt Date: 20110302
  Transmission Date: 20110831
  Serious: Yes (Other)
  Sender: FDA-Public Use
  Company Number: 028620

PATIENT
  Age: 45 Year
  Sex: Female

DRUGS (4)
  1. DIOVAN [Concomitant]
  2. PANTOZOL /01263202/ [Concomitant]
  3. LYOGEN /0000601/ [Concomitant]
  4. KEPPRA [Suspect]
     Indication: EPILEPSY
     Dosage: (ORAL) ; (DOSE REDUCED)
     Route: 048
     Dates: start: 20110207

REACTIONS (1)
  - DELIRIUM [None]
